FAERS Safety Report 10033631 (Version 1)
Quarter: 2014Q1

REPORT INFORMATION
  Report Type: Spontaneous
  Country: US (occurrence: US)
  Receive Date: 20140325
  Receipt Date: 20140325
  Transmission Date: 20141002
  Serious: No
  Sender: FDA-Public Use
  Company Number: US-BIOGENIDEC-2014BI023480

PATIENT
  Age: 69 Year
  Sex: Female

DRUGS (11)
  1. TECFIDERA [Suspect]
     Indication: MULTIPLE SCLEROSIS
     Route: 048
     Dates: start: 20140221
  2. ACETAMINOPHEN [Concomitant]
  3. AMPYRA [Concomitant]
  4. ASPIRIN LOW DOSE [Concomitant]
  5. ATORVASTATIN CALCIUM [Concomitant]
  6. FLUTICASONE PROPIONATE [Concomitant]
  7. LEXAPRO [Concomitant]
  8. LIBRAX [Concomitant]
  9. LORAZEPAM [Concomitant]
  10. VENTOLIN HFA [Concomitant]
  11. SPIRIVA HANDIHALER [Concomitant]

REACTIONS (1)
  - Haematemesis [Unknown]
